FAERS Safety Report 15267023 (Version 1)
Quarter: 2018Q3

REPORT INFORMATION
  Report Type: Spontaneous
  Country: US (occurrence: US)
  Receive Date: 20180724
  Receipt Date: 20180724
  Transmission Date: 20181010
  Serious: Yes (Hospitalization, Other)
  Sender: FDA-Public Use
  Company Number: None

PATIENT
  Age: 31 Year
  Sex: Female
  Weight: 65.77 kg

DRUGS (1)
  1. DEPO?PROVERA [Suspect]
     Active Substance: MEDROXYPROGESTERONE ACETATE
     Dates: start: 20171211, end: 20180311

REACTIONS (4)
  - Acne cystic [None]
  - Acne pustular [None]
  - Paranasal sinus discomfort [None]
  - Scar [None]

NARRATIVE: CASE EVENT DATE: 20171226
